FAERS Safety Report 8966053 (Version 1)
Quarter: 2012Q4

REPORT INFORMATION
  Report Type: 
  Country: US (occurrence: US)
  Receive Date: 20121217
  Receipt Date: 20121217
  Transmission Date: 20130627
  Serious: No
  Sender: FDA-Public Use
  Company Number: US-PFIZER INC-2012270968

PATIENT
  Age: 48 Year
  Sex: Female
  Weight: 54.42 kg

DRUGS (3)
  1. ADVIL ALLERGY AND CONGESTION RELIEF [Suspect]
     Indication: COLD
     Dosage: 4/100/10mg,daily
     Dates: start: 20120903, end: 201209
  2. ADVIL ALLERGY AND CONGESTION RELIEF [Suspect]
     Indication: CONGESTION NASAL
  3. METOPROLOL [Concomitant]
     Indication: BLOOD PRESSURE ABNORMAL
     Dosage: 50 mg, daily

REACTIONS (2)
  - Drug ineffective [Unknown]
  - Pruritus [Recovered/Resolved]
